FAERS Safety Report 23615246 (Version 1)
Quarter: 2024Q1

REPORT INFORMATION
  Report Type: Spontaneous
  Country: HU (occurrence: HU)
  Receive Date: 20240311
  Receipt Date: 20240311
  Transmission Date: 20240410
  Serious: Yes (Death, Life-Threatening, Hospitalization, Other)
  Sender: FDA-Public Use
  Company Number: HU-CELLTRION INC.-2024HU005484

PATIENT

DRUGS (3)
  1. YUFLYMA [Suspect]
     Active Substance: ADALIMUMAB-AATY
     Indication: Ankylosing spondylitis
     Dosage: MIDDLE OF SUMMER 2023 TO BEGINNING OF OCTOBER 2023
     Dates: start: 2023, end: 202310
  2. SULFASALAZINE [Concomitant]
     Active Substance: SULFASALAZINE
     Indication: Inflammatory bowel disease
     Dosage: UNK
  3. ACETAMINOPHEN [Concomitant]
     Active Substance: ACETAMINOPHEN
     Dosage: IN THE MIDDLE OF SUMMER SHE TOOK A FEW PILLS OF PARACETAMOL IMPERMANENTLY

REACTIONS (2)
  - Multiple organ dysfunction syndrome [Fatal]
  - Acute hepatic failure [Not Recovered/Not Resolved]
